FAERS Safety Report 11867706 (Version 5)
Quarter: 2016Q4

REPORT INFORMATION
  Report Type: Spontaneous
  Country: US (occurrence: US)
  Receive Date: 20151224
  Receipt Date: 20161014
  Transmission Date: 20170206
  Serious: Yes (Hospitalization, Other)
  Sender: FDA-Public Use
  Company Number: US-ASTRAZENECA-2015SF28134

PATIENT
  Age: 24043 Day
  Sex: Male

DRUGS (21)
  1. METOPROLOL TARTRATE. [Suspect]
     Active Substance: METOPROLOL TARTRATE
     Route: 065
  2. WARFARIN [Concomitant]
     Active Substance: WARFARIN
     Dates: end: 20160219
  3. COUMADIN [Concomitant]
     Active Substance: WARFARIN SODIUM
  4. STEROIDS [Concomitant]
     Active Substance: UNSPECIFIED INGREDIENT
     Indication: BLOOD PRESSURE INCREASED
  5. CORTISONE [Concomitant]
     Active Substance: CORTISONE\HYDROCORTISONE
     Indication: SHOULDER OPERATION
  6. LASIX [Concomitant]
     Active Substance: FUROSEMIDE
  7. FLUOXETINE HCL [Concomitant]
     Active Substance: FLUOXETINE HYDROCHLORIDE
     Indication: DEPRESSION
     Dates: start: 20160418
  8. DIGOXIN. [Concomitant]
     Active Substance: DIGOXIN
  9. BRILINTA [Suspect]
     Active Substance: TICAGRELOR
     Route: 048
     Dates: end: 20151203
  10. SPIRONOLACTONE. [Concomitant]
     Active Substance: SPIRONOLACTONE
  11. LEVOPHED [Concomitant]
     Active Substance: NOREPINEPHRINE BITARTRATE
     Indication: BLOOD PRESSURE INCREASED
  12. IRON [Concomitant]
     Active Substance: IRON
  13. LISINOPRIL. [Suspect]
     Active Substance: LISINOPRIL
     Route: 048
  14. ATORVASTATIN CALCIUM. [Concomitant]
     Active Substance: ATORVASTATIN CALCIUM
  15. TRADJENTA [Concomitant]
     Active Substance: LINAGLIPTIN
  16. VANCOMYCIN [Concomitant]
     Active Substance: VANCOMYCIN
     Dates: start: 201604
  17. METOPROLOL SUCCINATE. [Suspect]
     Active Substance: METOPROLOL SUCCINATE
     Route: 048
  18. SYNTHROID [Concomitant]
     Active Substance: LEVOTHYROXINE SODIUM
  19. BABY ASPIRIN [Concomitant]
     Active Substance: ASPIRIN
     Dosage: 81.0MG UNKNOWN
  20. FLUOXETINE HCL [Concomitant]
     Active Substance: FLUOXETINE HYDROCHLORIDE
     Indication: DEPRESSION
  21. POTASSIUM [Concomitant]
     Active Substance: POTASSIUM

REACTIONS (22)
  - Abdominal infection [Unknown]
  - Clostridium difficile infection [Recovered/Resolved]
  - Skin disorder [Not Recovered/Not Resolved]
  - Sinusitis [Recovered/Resolved]
  - Swelling [Unknown]
  - Thrombosis [Recovered/Resolved]
  - Haemoglobin decreased [Recovered/Resolved]
  - Sepsis [Recovered/Resolved]
  - Peritoneal haematoma [Recovered/Resolved]
  - Hypoproteinaemia [Not Recovered/Not Resolved]
  - Subcutaneous abscess [Recovered/Resolved]
  - Rotator cuff syndrome [Recovered/Resolved]
  - Internal haemorrhage [Recovered/Resolved]
  - Haematoma [Recovered/Resolved]
  - Weight decreased [Recovered/Resolved]
  - Dysphagia [Recovered/Resolved]
  - Skin ulcer [Recovered/Resolved]
  - Dysgeusia [Recovered/Resolved]
  - Nephrolithiasis [Recovered/Resolved]
  - Diarrhoea [Recovered/Resolved]
  - Decubitus ulcer [Recovered/Resolved]
  - Constipation [Not Recovered/Not Resolved]

NARRATIVE: CASE EVENT DATE: 20160301
